FAERS Safety Report 9822813 (Version 2)
Quarter: 2014Q1

REPORT INFORMATION
  Report Type: Spontaneous
  Country: US (occurrence: US)
  Receive Date: 20140116
  Receipt Date: 20140226
  Transmission Date: 20141002
  Serious: No
  Sender: FDA-Public Use
  Company Number: US-B.I. PHARMACEUTICALS,INC./RIDGEFIELD-2014-BI-00775BP

PATIENT
  Age: 67 Year
  Sex: Female

DRUGS (4)
  1. SPIRIVA [Suspect]
     Indication: SARCOIDOSIS
     Dosage: 36 MCG
     Route: 055
  2. PROAIR [Concomitant]
     Route: 055
  3. LISINOPRIL [Concomitant]
     Indication: CARDIAC DISORDER
     Route: 048
  4. METFORMIN [Concomitant]
     Indication: DIABETES MELLITUS
     Route: 048

REACTIONS (5)
  - Dyspnoea [Not Recovered/Not Resolved]
  - Prescribed overdose [Unknown]
  - Off label use [Unknown]
  - Product quality issue [Recovered/Resolved]
  - Product quality issue [Recovered/Resolved]
